FAERS Safety Report 9434220 (Version 1)
Quarter: 2013Q3

REPORT INFORMATION
  Report Type: Spontaneous
  Country: US (occurrence: None)
  Receive Date: 20130730
  Receipt Date: 20130730
  Transmission Date: 20140515
  Serious: Yes (Other)
  Sender: FDA-Public Use
  Company Number: None

PATIENT
  Age: 76 Year
  Sex: Female
  Weight: 56.25 kg

DRUGS (1)
  1. BROMFENAC [Suspect]
     Indication: CATARACT OPERATION
     Dosage: 1 DROP  1X DAILY  OPHTHALMIC
     Route: 047
     Dates: start: 20130722, end: 20130727

REACTIONS (2)
  - Rash [None]
  - Respiratory disorder [None]
